FAERS Safety Report 7769303-7 (Version None)
Quarter: 2011Q3

REPORT INFORMATION
  Report Type: 
  Country: None (occurrence: None)
  Receive Date: 20110920
  Receipt Date: 20110908
  Transmission Date: 20111222
  Serious: Yes (Hospitalization, Other)
  Sender: FDA-Public Use
  Company Number: CIP11000523

PATIENT
  Age: 63 Year
  Sex: Female

DRUGS (27)
  1. ACTONEL [Suspect]
     Indication: OSTEOPOROSIS
     Dosage: 5 MG DAILY, ORAL
     Route: 048
     Dates: start: 20010215, end: 20021008
  2. MOTRIN [Concomitant]
  3. ARAVA [Concomitant]
  4. ERGOCALCIFEROL [Concomitant]
  5. PROTONIX [Concomitant]
  6. PERCOCET [Concomitant]
  7. PREMARIN [Concomitant]
  8. CELEBREX [Concomitant]
  9. CALCIUM CITRATE (CALCIUM CITRATE) [Concomitant]
  10. HUMIRA [Concomitant]
  11. AVALIDE [Concomitant]
  12. HYDROCHLOROTHIAZIDE [Concomitant]
  13. COUMADIN [Concomitant]
  14. ACTONEL [Suspect]
     Indication: OSTEOPOROSIS
     Dosage: 35 MG ONCE WEEKLY, ORAL
     Route: 048
     Dates: start: 20021008
  15. POTASSIUM CHLORIDE [Concomitant]
  16. NEXIUM	/01479302/ (ESOMEPRAZOLE MAGNESIUM) [Concomitant]
  17. METHOTREXATE [Concomitant]
  18. PREDNISONE [Concomitant]
  19. NORVASC [Concomitant]
  20. AVAPRO [Concomitant]
  21. DILTIAZEM [Concomitant]
  22. PREVACID [Concomitant]
  23. PLAQUENIL /00072601/ (HYDROXYCHLOROQUINE) [Concomitant]
  24. OMEPRAZOLE [Concomitant]
  25. MORPHINE [Concomitant]
  26. LOVENOX [Concomitant]
  27. FLONASE [Concomitant]

REACTIONS (25)
  - MENISCUS LESION [None]
  - CATARACT OPERATION [None]
  - FRACTURE DISPLACEMENT [None]
  - ARTHRALGIA [None]
  - DYSSTASIA [None]
  - DENTAL CARIES [None]
  - FALL [None]
  - CONDITION AGGRAVATED [None]
  - PROCEDURAL PAIN [None]
  - PAIN IN EXTREMITY [None]
  - JOINT STIFFNESS [None]
  - TOOTH FRACTURE [None]
  - DEEP VEIN THROMBOSIS POSTOPERATIVE [None]
  - STRESS FRACTURE [None]
  - DEVICE BREAKAGE [None]
  - ANAEMIA POSTOPERATIVE [None]
  - GAIT DISTURBANCE [None]
  - BURSITIS [None]
  - URINARY TRACT INFECTION [None]
  - SKELETAL INJURY [None]
  - COMPLICATED FRACTURE [None]
  - ORAL TORUS [None]
  - KNEE ARTHROPLASTY [None]
  - FEMUR FRACTURE [None]
  - MOBILITY DECREASED [None]
